FAERS Safety Report 8375537-3 (Version None)
Quarter: 2012Q1

REPORT INFORMATION
  Report Type: 
  Country: None (occurrence: None)
  Receive Date: 20120323
  Receipt Date: 20110309
  Transmission Date: 20120608
  Serious: Yes (Disabling)
  Sender: FDA-Public Use
  Company Number: 163-21880-11031384

PATIENT
  Age: 71 Year
  Sex: Female

DRUGS (6)
  1. ANTI-DEPRESSANT [Concomitant]
  2. ACYCLOVIR [Concomitant]
  3. REVLIMID [Suspect]
     Indication: MULTIPLE MYELOMA
     Dosage: 10 MG, 1 IN 1 D, PO; 5 MG, QD X 28 DAYS, PO
     Route: 048
     Dates: start: 20110201
  4. REVLIMID [Suspect]
     Indication: MULTIPLE MYELOMA
     Dosage: 10 MG, 1 IN 1 D, PO; 5 MG, QD X 28 DAYS, PO
     Route: 048
     Dates: start: 20101201
  5. ASPIRIN [Concomitant]
  6. NEURONTIN [Concomitant]

REACTIONS (5)
  - AMNESIA [None]
  - APHONIA [None]
  - HERPES ZOSTER [None]
  - DEPRESSION [None]
  - FATIGUE [None]
